FAERS Safety Report 4597441-9 (Version None)
Quarter: 2005Q1

REPORT INFORMATION
  Report Type: 
  Country: None (occurrence: None)
  Receive Date: 20050303
  Receipt Date: 20050218
  Transmission Date: 20050727
  Serious: Yes (Death, Hospitalization)
  Sender: FDA-Public Use
  Company Number: US-GLAXOSMITHKLINE-A0546410A

PATIENT
  Age: 66 Year
  Sex: Male
  Weight: 72.7 kg

DRUGS (1)
  1. TUMS [Suspect]
     Route: 048

REACTIONS (3)
  - BARRETT'S OESOPHAGUS [None]
  - OESOPHAGEAL CARCINOMA [None]
  - SEPSIS [None]
